FAERS Safety Report 7732039-2 (Version None)
Quarter: 2011Q3

REPORT INFORMATION
  Report Type: 
  Country: None (occurrence: None)
  Receive Date: 20110906
  Receipt Date: 20110829
  Transmission Date: 20111222
  Serious: Yes (Other)
  Sender: FDA-Public Use
  Company Number: IL-BAYER-2011-080039

PATIENT
  Sex: Female

DRUGS (1)
  1. MIRENA [Suspect]
     Dosage: UNK
     Dates: start: 20110501

REACTIONS (3)
  - DYSURIA [None]
  - POLLAKIURIA [None]
  - URINARY TRACT INFECTION [None]
